FAERS Safety Report 24206347 (Version 1)
Quarter: 2024Q3

REPORT INFORMATION
  Report Type: Spontaneous
  Country: US (occurrence: US)
  Receive Date: 20240813
  Receipt Date: 20240813
  Transmission Date: 20241017
  Serious: No
  Sender: ELI LILLY AND CO
  Company Number: US-ELI_LILLY_AND_COMPANY-US202408003933

PATIENT
  Age: 38 Year
  Sex: Female

DRUGS (1)
  1. LYUMJEV TEMPO PEN [Suspect]
     Active Substance: INSULIN LISPRO
     Indication: Product used for unknown indication
     Dosage: 100 U/ML, UNKNOWN
     Route: 065

REACTIONS (4)
  - Feeling abnormal [Unknown]
  - Lethargy [Unknown]
  - Fatigue [Unknown]
  - Headache [Unknown]
